FAERS Safety Report 21552030 (Version 2)
Quarter: 2022Q4

REPORT INFORMATION
  Report Type: Spontaneous
  Country: US (occurrence: US)
  Receive Date: 20221104
  Receipt Date: 20221109
  Transmission Date: 20230113
  Serious: Yes (Life-Threatening, Hospitalization, Other)
  Sender: FDA-Public Use
  Company Number: US-ADVANZ PHARMA-202210006957

PATIENT

DRUGS (2)
  1. HYDROXYCHLOROQUINE [Suspect]
     Active Substance: HYDROXYCHLOROQUINE
     Indication: Sarcoidosis
     Dosage: UNK
     Route: 065
  2. PREDNISONE [Concomitant]
     Active Substance: PREDNISONE
     Indication: Sarcoidosis
     Dosage: UNK

REACTIONS (9)
  - Cyanosis [Unknown]
  - Cold sweat [Unknown]
  - Dyspnoea [Recovering/Resolving]
  - Syncope [Recovering/Resolving]
  - Bundle branch block [Recovering/Resolving]
  - Torsade de pointes [Recovering/Resolving]
  - Palpitations [Recovering/Resolving]
  - Dizziness [Recovering/Resolving]
  - Ventricular tachycardia [Recovering/Resolving]
